FAERS Safety Report 6677314-8 (Version None)
Quarter: 2010Q2

REPORT INFORMATION
  Report Type: 
  Country: None (occurrence: None)
  Receive Date: 20100408
  Receipt Date: 20100408
  Transmission Date: 20101027
  Serious: Yes (Other)
  Sender: FDA-Public Use
  Company Number: None

PATIENT
  Age: 60 Year
  Sex: Female
  Weight: 65.318 kg

DRUGS (1)
  1. CIPROFLOXACIN [Suspect]
     Indication: INFECTION
     Dosage: 1 TABLET 2 X PER DAY
     Dates: start: 20100326

REACTIONS (4)
  - ABASIA [None]
  - SWELLING [None]
  - TENDON DISORDER [None]
  - TENDON PAIN [None]
